FAERS Safety Report 7065706-7 (Version None)
Quarter: 2010Q4

REPORT INFORMATION
  Report Type: 
  Country: None (occurrence: None)
  Receive Date: 20101027
  Receipt Date: 20101014
  Transmission Date: 20110411
  Serious: Yes (Hospitalization)
  Sender: FDA-Public Use
  Company Number: FR-SANOFI-AVENTIS-2010SA050107

PATIENT
  Sex: Female
  Weight: 68 kg

DRUGS (7)
  1. LASIX [Suspect]
     Route: 048
     Dates: start: 20091201
  2. ALISKIREN [Suspect]
     Route: 048
     Dates: start: 20091201, end: 20100401
  3. NEBIVOLOL HCL [Concomitant]
     Route: 048
  4. LEVOTHYROXINE SODIUM [Concomitant]
     Indication: PRODUCT USED FOR UNKNOWN INDICATION
     Route: 048
  5. EUROBIOL [Concomitant]
     Indication: PANCREATITIS
     Route: 048
  6. TRIMETAZIDINE HYDROCHLORIDE [Concomitant]
     Route: 048
  7. TAREG [Concomitant]
     Route: 048
     Dates: start: 20090301

REACTIONS (3)
  - BENIGN SMALL INTESTINAL NEOPLASM [None]
  - DIARRHOEA [None]
  - WEIGHT DECREASED [None]
